FAERS Safety Report 16490271 (Version 1)
Quarter: 2019Q2

REPORT INFORMATION
  Report Type: Report from Study
  Country: CN (occurrence: CN)
  Receive Date: 20190628
  Receipt Date: 20190628
  Transmission Date: 20190711
  Serious: Yes (Other)
  Sender: FDA-Public Use
  Company Number: CN-GILEAD-2019-0415488

PATIENT
  Age: 56 Year
  Sex: Female

DRUGS (6)
  1. METOPROLOL TARTRATE. [Concomitant]
     Active Substance: METOPROLOL TARTRATE
  2. SOFOSBUVIR [Suspect]
     Active Substance: SOFOSBUVIR
     Indication: HEPATITIS C
     Dosage: 200 MG, QD
     Route: 065
  3. NOVOLIN 30R [INSULIN] [Concomitant]
  4. NIFEDIPINE. [Concomitant]
     Active Substance: NIFEDIPINE
  5. CARVEDILOL. [Concomitant]
     Active Substance: CARVEDILOL
  6. DACLATASVIR. [Concomitant]
     Active Substance: DACLATASVIR
     Indication: HEPATITIS C
     Dosage: 60 MG, QD
     Route: 065

REACTIONS (1)
  - Hyperkalaemia [Unknown]
